FAERS Safety Report 5497073-4 (Version None)
Quarter: 2007Q4

REPORT INFORMATION
  Report Type: 
  Country: None (occurrence: None)
  Receive Date: 20071018
  Receipt Date: 20061204
  Transmission Date: 20080405
  Serious: Yes (Other)
  Sender: FDA-Public Use
  Company Number: 2005100274

PATIENT
  Age: 52 Year
  Sex: Male

DRUGS (2)
  1. NEURONTIN [Suspect]
     Indication: DIABETIC NEUROPATHY
  2. NEURONTIN [Suspect]
     Indication: NEUROPATHY PERIPHERAL

REACTIONS (3)
  - DRUG INEFFECTIVE [None]
  - INTENTIONAL SELF-INJURY [None]
  - SUICIDE ATTEMPT [None]
